FAERS Safety Report 6101861-0 (Version None)
Quarter: 2009Q1

REPORT INFORMATION
  Report Type: 
  Country: None (occurrence: None)
  Receive Date: 20090304
  Receipt Date: 20021205
  Transmission Date: 20090719
  Serious: No
  Sender: FDA-Public Use
  Company Number: US-ABBOTT-08P-163-0458455-00

PATIENT

DRUGS (4)
  1. VALPROATE SODIUM [Suspect]
     Indication: DRUG USE FOR UNKNOWN INDICATION
  2. ROFECOXIB [Interacting]
     Indication: DRUG USE FOR UNKNOWN INDICATION
  3. HORMONE REPLACEMENT THEARPY [Interacting]
     Indication: DRUG USE FOR UNKNOWN INDICATION
  4. OLANZAPINE [Interacting]
     Indication: DRUG USE FOR UNKNOWN INDICATION

REACTIONS (2)
  - DRUG INTERACTION [None]
  - HEPATOTOXICITY [None]
